FAERS Safety Report 8773170 (Version 1)
Quarter: 2012Q4

REPORT INFORMATION
  Report Type: 
  Country: US (occurrence: US)
  Receive Date: 20120907
  Receipt Date: 20120907
  Transmission Date: 20130627
  Serious: Yes (Other)
  Sender: FDA-Public Use
  Company Number: US-BRISTOL-MYERS SQUIBB COMPANY-16906349

PATIENT
  Age: 86 Year
  Sex: Female

DRUGS (5)
  1. WARFARIN SODIUM [Suspect]
  2. TERIPARATIDE [Suspect]
     Indication: OSTEOPOROSIS
  3. PREDNISONE [Suspect]
  4. CALCIUM [Suspect]
  5. VITAMIN D [Suspect]

REACTIONS (1)
  - Calciphylaxis [Recovering/Resolving]
